FAERS Safety Report 8703970 (Version 3)
Quarter: 2012Q4

REPORT INFORMATION
  Report Type: 
  Country: JP (occurrence: JP)
  Receive Date: 20120803
  Receipt Date: 20121206
  Transmission Date: 20130627
  Serious: Yes (Hospitalization)
  Sender: FDA-Public Use
  Company Number: JP-009507513-2012SP025819

PATIENT
  Age: 64 Year
  Sex: Male
  Weight: 64 kg

DRUGS (34)
  1. PEGINTRON [Suspect]
     Indication: HEPATITIS C
     Dosage: 1.5 Microgram per kilogram, qw
     Route: 058
     Dates: start: 20120308, end: 20120404
  2. PEGINTRON [Suspect]
     Dosage: 0.78 Microgram per kilogram, qw
     Route: 058
     Dates: start: 20120405, end: 20120411
  3. PEGINTRON [Suspect]
     Dosage: 1.5 Microgram per kilogram, qw
     Route: 058
     Dates: start: 20120412, end: 20120703
  4. PEGINTRON [Suspect]
     Dosage: 80 Microgram per kilogram, qw
     Route: 058
     Dates: start: 20120710, end: 20120816
  5. REBETOL [Suspect]
     Indication: CHRONIC HEPATITIS C
     Dosage: 800 mg, QD
     Route: 048
     Dates: start: 20120308, end: 20120418
  6. REBETOL [Suspect]
     Dosage: 600 mg, QD
     Route: 048
     Dates: start: 20120419, end: 20120516
  7. REBETOL [Suspect]
     Dosage: 400 mg, QD
     Route: 048
     Dates: start: 20120517, end: 20120604
  8. REBETOL [Suspect]
     Dosage: 200 mg, qd
     Route: 048
     Dates: start: 20120628, end: 20120708
  9. REBETOL [Suspect]
     Dosage: 400 mg, qd
     Route: 048
     Dates: start: 20120709, end: 20120801
  10. REBETOL [Suspect]
     Dosage: 600 mg, qd
     Route: 048
     Dates: start: 20120802, end: 20120821
  11. TELAVIC [Suspect]
     Indication: CHRONIC HEPATITIS C
     Dosage: 2250 mg, QD
     Route: 048
     Dates: start: 20120308
  12. XYZAL [Concomitant]
     Indication: PRURITUS
     Dosage: 5 mg, qd
     Route: 048
     Dates: start: 20120314, end: 20120611
  13. PURSENNID (SENNOSIDES) [Concomitant]
     Indication: CONSTIPATION
     Dosage: 24 mg, qd
     Route: 048
     Dates: start: 20120317, end: 20120611
  14. PARIET [Concomitant]
     Indication: GASTROOESOPHAGEAL REFLUX DISEASE
     Dosage: 10 mg, qd
     Route: 048
     Dates: start: 20120319
  15. PARIET [Concomitant]
     Indication: GASTROOESOPHAGEAL REFLUX DISEASE
  16. GASMOTIN [Concomitant]
     Indication: DYSPEPSIA
     Dosage: 15 mg, qd
     Route: 048
     Dates: start: 20120409, end: 20120822
  17. JZOLOFT [Concomitant]
     Indication: DEPRESSION
     Dosage: 25 mg, qd
     Route: 048
     Dates: start: 20120409
  18. DEPAS [Concomitant]
     Indication: DEPRESSION
     Dosage: 1 mg, qd
     Route: 048
  19. MAGMITT [Concomitant]
     Indication: CONSTIPATION
     Dosage: 990 mg, qd
     Route: 048
     Dates: end: 20120822
  20. MAGMITT [Concomitant]
     Dosage: 990 mg, Once
     Route: 048
  21. NERISONA [Concomitant]
     Indication: RASH
     Dosage: 50 g, qd (as needed)
     Route: 061
     Dates: start: 20120312, end: 20120425
  22. NERISONA [Concomitant]
     Indication: PRURITUS
  23. EURAX-H [Concomitant]
     Indication: PRURITUS
     Dosage: 50 g, qd (as needed)
     Route: 061
     Dates: start: 20120312, end: 20120425
  24. DICLOFENAC [Concomitant]
     Indication: PYREXIA
     Dosage: 25 mg, prn
     Route: 051
     Dates: start: 20120420
  25. ISODINE [Concomitant]
     Indication: OROPHARYNGEAL PAIN
     Dosage: UPDATE (02JUL2012): DOSAGE: DAILY DOSE UNKNOWN, AS NEEDED
     Route: 051
     Dates: start: 20120506
  26. LENDORMIN D [Concomitant]
     Indication: DEPRESSION
     Dosage: 0.25 mg, qd (as needed)
     Route: 048
     Dates: start: 20120311, end: 20120316
  27. LOXONIN [Concomitant]
     Indication: PYREXIA
     Dosage: 60 mg, qd (as needed)
     Route: 048
     Dates: start: 20120608, end: 20120608
  28. LOXONIN [Concomitant]
     Dosage: 60 mg, qd (as needed)
     Route: 048
     Dates: start: 20120608, end: 20120608
  29. PURSENNID (SENNA) [Concomitant]
     Indication: CONSTIPATION
     Route: 048
     Dates: start: 20120317
  30. REFLEX [Concomitant]
     Dosage: 15 mg, qd
     Route: 048
     Dates: start: 20120416, end: 20120422
  31. VOLTAREN [Concomitant]
     Indication: PYREXIA
     Dosage: 25mg/day, as needed
     Route: 051
     Dates: start: 20120420
  32. ZYLORIC [Concomitant]
     Indication: HYPERURICAEMIA
     Dosage: 100 mg, qd
     Route: 048
     Dates: start: 20120427, end: 20120620
  33. MUCOSTA [Concomitant]
     Indication: GASTROOESOPHAGEAL REFLUX DISEASE
     Dosage: 300 mg, qd
     Route: 048
     Dates: start: 20120506
  34. DOGMATYL [Concomitant]
     Indication: DEPRESSION
     Dosage: 150 mg, qd
     Route: 048
     Dates: start: 20120507

REACTIONS (2)
  - Nausea [Not Recovered/Not Resolved]
  - Decreased appetite [Not Recovered/Not Resolved]
